FAERS Safety Report 11867003 (Version 2)
Quarter: 2016Q1

REPORT INFORMATION
  Report Type: Spontaneous
  Country: UY (occurrence: US)
  Receive Date: 20151224
  Receipt Date: 20160301
  Transmission Date: 20160526
  Serious: Yes (Other)
  Sender: FDA-Public Use
  Company Number: US-TEVA-620009ACC

PATIENT
  Age: 25 Year
  Sex: Female
  Weight: 56.3 kg

DRUGS (1)
  1. PARAGARD T 380A [Suspect]
     Active Substance: COPPER
     Indication: CONTRACEPTION
     Dates: start: 20151110, end: 20151111

REACTIONS (7)
  - Pelvic inflammatory disease [Unknown]
  - Uterine tenderness [Recovered/Resolved]
  - Pain [Recovered/Resolved]
  - Abdominal tenderness [Recovered/Resolved]
  - Pelvic pain [Recovered/Resolved]
  - Vaginal haemorrhage [Recovered/Resolved]
  - Vomiting [Recovered/Resolved]

NARRATIVE: CASE EVENT DATE: 20151110
